FAERS Safety Report 4666516-8 (Version None)
Quarter: 2005Q2

REPORT INFORMATION
  Report Type: 
  Country: None (occurrence: None)
  Receive Date: 20050518
  Receipt Date: 20050509
  Transmission Date: 20051028
  Serious: Yes (Death, Hospitalization)
  Sender: FDA-Public Use
  Company Number: 033-1343-M0200031

PATIENT
  Age: 35 Year
  Sex: Male
  Weight: 47 kg

DRUGS (8)
  1. VIRACEPT [Suspect]
     Indication: HIV INFECTION
     Dosage: ORAL
     Route: 048
     Dates: end: 20020325
  2. ANSATIPINE (RIFABUTIN) (RIFABUTIN) [Suspect]
     Indication: MYCOBACTERIAL INFECTION
     Dosage: 150 MG (150 MG, QD), ORAL
     Route: 048
     Dates: start: 20020319, end: 20020324
  3. BACTRIM [Suspect]
     Indication: BACTERIAL INFECTION
     Dosage: ORAL
     Route: 048
     Dates: start: 20020315, end: 20020324
  4. MYAMBUTOL [Suspect]
     Indication: MYCOBACTERIAL INFECTION
     Dosage: 2000 MG (400 MG, 1 IN 5 D), ORAL
     Route: 048
     Dates: start: 20020319, end: 20020326
  5. ACETAMINOPHEN [Suspect]
     Indication: ILL-DEFINED DISORDER
     Dosage: ORAL
     Route: 048
     Dates: end: 20020324
  6. SUBUTEX [Suspect]
     Indication: ILL-DEFINED DISORDER
     Dosage: 8 MG (8 MG, QD), ORAL
     Route: 048
  7. CLARITHROMYCIN [Suspect]
     Indication: MYCOBACTERIAL INFECTION
     Dosage: 1000 MG (500 MG, BID), ORAL
     Route: 048
     Dates: start: 20020319, end: 20020326
  8. COMBIVIR [Concomitant]

REACTIONS (5)
  - DEPRESSED LEVEL OF CONSCIOUSNESS [None]
  - DISEASE RECURRENCE [None]
  - HODGKIN'S DISEASE [None]
  - MYCOBACTERIAL INFECTION [None]
  - PANCYTOPENIA [None]
